FAERS Safety Report 23467200 (Version 2)
Quarter: 2024Q2

REPORT INFORMATION
  Report Type: Report from Study
  Country: US (occurrence: US)
  Receive Date: 20240201
  Receipt Date: 20240417
  Transmission Date: 20240716
  Serious: Yes (Other)
  Sender: FDA-Public Use
  Company Number: US-GILEAD-2024-0660034

PATIENT
  Sex: Male

DRUGS (3)
  1. AMBRISENTAN [Suspect]
     Active Substance: AMBRISENTAN
     Indication: Pulmonary hypertension
     Dosage: 5 MG, QD
     Route: 065
     Dates: start: 20230515
  2. AMLODIPINE [Concomitant]
     Active Substance: AMLODIPINE BESYLATE
  3. SILDENAFIL [Concomitant]
     Active Substance: SILDENAFIL

REACTIONS (11)
  - Diabetes mellitus [Not Recovered/Not Resolved]
  - Syncope [Recovered/Resolved]
  - Cerebrovascular accident [Recovered/Resolved]
  - Insomnia [Unknown]
  - Memory impairment [Unknown]
  - Dizziness [Recovered/Resolved]
  - Dyspnoea [Unknown]
  - Decreased activity [Unknown]
  - Exposure to toxic agent [Unknown]
  - Feeling abnormal [Unknown]
  - Eye disorder [Unknown]
